FAERS Safety Report 6910365-4 (Version None)
Quarter: 2010Q3

REPORT INFORMATION
  Report Type: 
  Country: None (occurrence: None)
  Receive Date: 20100806
  Receipt Date: 20100804
  Transmission Date: 20110219
  Serious: Yes (Hospitalization, Other)
  Sender: FDA-Public Use
  Company Number: JP-BAYER-201033203GPV

PATIENT
  Age: 81 Year
  Sex: Female

DRUGS (5)
  1. ASPIRIN [Suspect]
     Indication: ANTICOAGULANT THERAPY
     Dosage: THROUGH A GASTRIC TUBE
  2. CILOSTAZOL [Suspect]
     Indication: ANTIPLATELET THERAPY
     Dosage: THROUGH A GASTRIC TUBE
  3. TICLOPIDINE HCL [Suspect]
     Indication: ANGINA PECTORIS
  4. HEPARIN [Concomitant]
     Indication: ANTICOAGULANT THERAPY
  5. ANESTHESIA [Concomitant]
     Indication: CORONARY ARTERY BYPASS

REACTIONS (5)
  - ANAEMIA [None]
  - CARDIAC FAILURE ACUTE [None]
  - DYSPNOEA [None]
  - MUSCLE HAEMORRHAGE [None]
  - SHOCK [None]
